FAERS Safety Report 9918760 (Version 1)
Quarter: 2014Q1

REPORT INFORMATION
  Report Type: Spontaneous
  Country: CA (occurrence: CA)
  Receive Date: 20140224
  Receipt Date: 20140224
  Transmission Date: 20141002
  Serious: Yes (Death)
  Sender: FDA-Public Use
  Company Number: CA-ELI_LILLY_AND_COMPANY-CA201402006224

PATIENT
  Sex: Male

DRUGS (4)
  1. OLANZAPINE [Suspect]
     Indication: WRONG DRUG ADMINISTERED
     Dosage: 1 DF, SINGLE
     Route: 065
  2. AMITRIPTYLINE [Suspect]
     Indication: WRONG DRUG ADMINISTERED
     Dosage: 1 DF, SINGLE
     Route: 065
  3. QUETIAPINE [Suspect]
     Indication: WRONG DRUG ADMINISTERED
     Dosage: 1 DF, SINGLE
     Route: 065
  4. LOXAPINE [Suspect]
     Indication: WRONG DRUG ADMINISTERED
     Dosage: 1 DF, SINGLE
     Route: 065

REACTIONS (2)
  - Death [Fatal]
  - Wrong patient received medication [Unknown]
